FAERS Safety Report 15207979 (Version 1)
Quarter: 2018Q3

REPORT INFORMATION
  Report Type: Spontaneous
  Country: US (occurrence: US)
  Receive Date: 20180628
  Receipt Date: 20180628
  Transmission Date: 20181010
  Serious: No
  Sender: FDA-Public Use
  Company Number: None

PATIENT
  Age: 56 Year
  Sex: Female

DRUGS (1)
  1. MYCOPHENOLATE MOF TAB 500MG [Suspect]
     Active Substance: MYCOPHENOLATE MOFETIL

REACTIONS (5)
  - Product substitution issue [None]
  - Drug effect decreased [None]
  - Therapeutic response changed [None]
  - Pneumonitis [None]
  - Product availability issue [None]

NARRATIVE: CASE EVENT DATE: 20180628
